FAERS Safety Report 5045225-X (Version None)
Quarter: 2006Q3

REPORT INFORMATION
  Report Type: 
  Country: None (occurrence: None)
  Receive Date: 20060707
  Receipt Date: 20060703
  Transmission Date: 20061208
  Serious: Yes (Hospitalization)
  Sender: FDA-Public Use
  Company Number: GB-GLAXOSMITHKLINE-B0429725A

PATIENT
  Sex: Male

DRUGS (11)
  1. AMOXIL [Suspect]
     Dosage: 500MG THREE TIMES PER DAY
     Route: 048
     Dates: start: 20060623
  2. PARACETAMOL [Concomitant]
  3. ATORVASTATIN CALCIUM [Concomitant]
  4. OMEPRAZOLE [Concomitant]
  5. GABAPENTIN [Concomitant]
  6. UNKNOWN MEDICATION [Concomitant]
  7. FOLIC ACID [Concomitant]
  8. UNKNOWN MEDICATION [Concomitant]
  9. ASPIRIN [Concomitant]
  10. FLUCLOXACILLIN [Concomitant]
  11. METOPROLOL TARTRATE [Concomitant]

REACTIONS (1)
  - MYOCLONUS [None]
